FAERS Safety Report 6723424-6 (Version None)
Quarter: 2010Q2

REPORT INFORMATION
  Report Type: 
  Country: None (occurrence: None)
  Receive Date: 20100513
  Receipt Date: 20100506
  Transmission Date: 20101027
  Serious: Yes (Hospitalization)
  Sender: FDA-Public Use
  Company Number: PHHO2009TW00507

PATIENT
  Sex: Male
  Weight: 64.5 kg

DRUGS (7)
  1. ALISKIREN ALI+TAB+CVR [Suspect]
     Indication: CARDIOVASCULAR DISORDER
     Dosage: CODE NOT BROKEN
     Route: 048
     Dates: start: 20080319
  2. CONCOR [Suspect]
     Dosage: 5 MG, QD
     Route: 048
     Dates: start: 20041020, end: 20090101
  3. CONCOR [Suspect]
     Dosage: 5 MG, BID
     Route: 048
     Dates: start: 20090102, end: 20090102
  4. CONCOR [Suspect]
     Dosage: 5 MG, QD
     Route: 048
     Dates: start: 20090103
  5. DOXAZOSIN MESILATE [Concomitant]
     Dosage: UNK
  6. IRBESARTAN [Concomitant]
     Dosage: UNK
  7. ISOPTIN [Concomitant]
     Dosage: UNK

REACTIONS (6)
  - ACCIDENTAL OVERDOSE [None]
  - CHEST DISCOMFORT [None]
  - DIZZINESS [None]
  - HYPOCALCAEMIA [None]
  - NODAL ARRHYTHMIA [None]
  - VOMITING [None]
